FAERS Safety Report 7290833-9 (Version None)
Quarter: 2011Q1

REPORT INFORMATION
  Report Type: 
  Country: None (occurrence: None)
  Receive Date: 20110214
  Receipt Date: 20110209
  Transmission Date: 20110831
  Serious: Yes (Hospitalization)
  Sender: FDA-Public Use
  Company Number: SE-PFIZER INC-2011028866

PATIENT
  Age: 56 Year
  Sex: Male

DRUGS (6)
  1. CALCICHEW-D3 [Concomitant]
     Dosage: UNK
  2. OXYCODONE HCL [Concomitant]
     Dosage: UNK MG, UNK
  3. BEHEPAN [Concomitant]
     Dosage: UNK MG, UNK
  4. TAZOCIN [Suspect]
     Indication: INFECTION
     Dosage: UNK
     Dates: start: 20101101, end: 20101202
  5. OMEPRAZOLE [Concomitant]
     Dosage: UNK
  6. DURAGESIC-100 [Concomitant]
     Dosage: UNK UCI, UNK

REACTIONS (5)
  - PAIN OF SKIN [None]
  - CHEST PAIN [None]
  - INTESTINAL ANASTOMOSIS COMPLICATION [None]
  - LEUKOPENIA [None]
  - PYREXIA [None]
